FAERS Safety Report 8553047-8 (Version None)
Quarter: 2012Q3

REPORT INFORMATION
  Report Type: 
  Country: None (occurrence: None)
  Receive Date: 20120731
  Receipt Date: 20120723
  Transmission Date: 20120928
  Serious: Yes (Other)
  Sender: FDA-Public Use
  Company Number: US-SANOFI-AVENTIS-2012SA052041

PATIENT
  Sex: Female

DRUGS (1)
  1. ALLEGRA [Suspect]
     Route: 048

REACTIONS (4)
  - BACK DISORDER [None]
  - ARTHROPATHY [None]
  - ATRIAL FIBRILLATION [None]
  - NEUROPATHY PERIPHERAL [None]
